FAERS Safety Report 6679296-1 (Version None)
Quarter: 2010Q2

REPORT INFORMATION
  Report Type: 
  Country: None (occurrence: None)
  Receive Date: 20100408
  Receipt Date: 20090710
  Transmission Date: 20101027
  Serious: No
  Sender: FDA-Public Use
  Company Number: 2009-00469

PATIENT
  Sex: Female

DRUGS (2)
  1. ZICAM COLD REMEDY NASAL GEL [Suspect]
     Dosage: SPORADIC - 2 WEEKS, EARLY 2009-AFTER 2 WKS
  2. PROZAC [Concomitant]

REACTIONS (1)
  - ANOSMIA [None]
